FAERS Safety Report 21682334 (Version 2)
Quarter: 2022Q4

REPORT INFORMATION
  Report Type: Spontaneous
  Country: US (occurrence: None)
  Receive Date: 20221205
  Receipt Date: 20221215
  Transmission Date: 20230113
  Serious: Yes (Other)
  Sender: FDA-Public Use
  Company Number: US-ROCHE-3192884

PATIENT
  Age: 17 Year
  Sex: Male
  Weight: 55 kg

DRUGS (6)
  1. XOLAIR [Suspect]
     Active Substance: OMALIZUMAB
     Indication: Asthma
     Route: 058
     Dates: start: 20130925
  2. XOLAIR [Suspect]
     Active Substance: OMALIZUMAB
  3. XOLAIR [Suspect]
     Active Substance: OMALIZUMAB
     Route: 058
     Dates: start: 20200908
  4. XOLAIR [Suspect]
     Active Substance: OMALIZUMAB
  5. XOLAIR [Suspect]
     Active Substance: OMALIZUMAB
     Route: 058
     Dates: start: 20200908
  6. XOLAIR [Suspect]
     Active Substance: OMALIZUMAB

REACTIONS (10)
  - Arthritis bacterial [Unknown]
  - Multiple fractures [Unknown]
  - Injection site pain [Recovered/Resolved]
  - Influenza [Unknown]
  - Coronavirus infection [Unknown]
  - Respiratory syncytial virus infection [Unknown]
  - Subcutaneous abscess [Unknown]
  - Seasonal allergy [Unknown]
  - Dyspnoea exertional [Unknown]
  - Needle issue [Unknown]

NARRATIVE: CASE EVENT DATE: 20200908
